FAERS Safety Report 20326182 (Version 4)
Quarter: 2022Q3

REPORT INFORMATION
  Report Type: Spontaneous
  Country: JP (occurrence: JP)
  Receive Date: 20220112
  Receipt Date: 20220714
  Transmission Date: 20221027
  Serious: No
  Sender: FDA-Public Use
  Company Number: JP-GSKNCCC-Case-01389121_AE-53439

PATIENT

DRUGS (9)
  1. SOTROVIMAB [Suspect]
     Active Substance: SOTROVIMAB
     Indication: COVID-19
     Dosage: 500 MG/100 ML/30 MIN, QD
     Dates: start: 20211229, end: 20211229
  2. RABEPRAZOLE SODIUM [Concomitant]
     Active Substance: RABEPRAZOLE SODIUM
     Dosage: 5 MG, QD
     Dates: end: 20211229
  3. ASPIRIN [Concomitant]
     Active Substance: ASPIRIN
     Dosage: 100 MG, QD
     Dates: end: 20211229
  4. PRAVASTATIN SODIUM [Concomitant]
     Active Substance: PRAVASTATIN SODIUM
     Dosage: 5 MG, QD
     Dates: end: 20211229
  5. PILSICAINIDE HYDROCHLORIDE [Concomitant]
     Active Substance: PILSICAINIDE HYDROCHLORIDE
     Dosage: 25 MG, QD
     Dates: end: 20211229
  6. PILSICAINIDE HYDROCHLORIDE [Concomitant]
     Active Substance: PILSICAINIDE HYDROCHLORIDE
     Dosage: 50 MG, QD
     Dates: end: 20211229
  7. AMLODIPINE BESYLATE\AZILSARTAN [Concomitant]
     Active Substance: AMLODIPINE BESYLATE\AZILSARTAN
     Dosage: 20 MG/2.5 MG, QD
     Dates: end: 20211229
  8. ELDECALCITOL [Concomitant]
     Active Substance: ELDECALCITOL
     Dosage: 0.75 MG, QD
     Dates: end: 20211229
  9. LIMAPROST [Concomitant]
     Active Substance: LIMAPROST
     Dosage: 5 UG, TID, AFTER EVERY MEAL
     Dates: end: 20211229

REACTIONS (4)
  - Infusion related reaction [Recovered/Resolved]
  - Flushing [Recovered/Resolved]
  - Dysphonia [Recovered/Resolved]
  - Rhinorrhoea [Recovered/Resolved]

NARRATIVE: CASE EVENT DATE: 20211201
